FAERS Safety Report 5796517-8 (Version None)
Quarter: 2008Q3

REPORT INFORMATION
  Report Type: 
  Country: None (occurrence: None)
  Receive Date: 20080701
  Receipt Date: 20080630
  Transmission Date: 20090109
  Serious: Yes (Other)
  Sender: FDA-Public Use
  Company Number: B0526996A

PATIENT
  Age: 94 Year
  Sex: Female

DRUGS (6)
  1. ALLOPURINOL [Suspect]
     Dosage: 100MG PER DAY
     Route: 048
     Dates: start: 20080619, end: 20080625
  2. DIGOSIN [Suspect]
     Route: 065
  3. WARFARIN SODIUM [Suspect]
     Route: 048
  4. VASOLAN [Suspect]
     Route: 065
  5. DIART [Suspect]
     Route: 048
  6. AMLODIPINE [Suspect]
     Route: 048

REACTIONS (1)
  - PANCYTOPENIA [None]
